FAERS Safety Report 6506672-X (Version None)
Quarter: 2009Q4

REPORT INFORMATION
  Report Type: 
  Country: None (occurrence: None)
  Receive Date: 20091221
  Receipt Date: 20091210
  Transmission Date: 20100525
  Serious: Yes (Hospitalization, Other)
  Sender: FDA-Public Use
  Company Number: US-ROCHE-652509

PATIENT
  Sex: Female
  Weight: 83.9 kg

DRUGS (8)
  1. ACCUTANE [Suspect]
     Route: 065
     Dates: start: 20030113
  2. ACCUTANE [Suspect]
     Route: 065
     Dates: start: 20030210
  3. ACCUTANE [Suspect]
     Route: 065
     Dates: start: 20030311
  4. ACCUTANE [Suspect]
     Dosage: 80 MG DAILY ALTERNATING WITH 120 MG EVERY THRID DAY
     Route: 065
     Dates: start: 20030409
  5. AMNESTEEM [Suspect]
     Indication: ACNE
     Route: 065
     Dates: start: 20030317, end: 20030713
  6. DIFFERIN [Concomitant]
     Indication: ACNE
     Dates: start: 20030108
  7. DOXYCYCLINE [Concomitant]
     Indication: ACNE
     Dates: start: 20030108
  8. IBUPROFEN [Concomitant]

REACTIONS (12)
  - APHTHOUS STOMATITIS [None]
  - BLOOD CHOLESTEROL INCREASED [None]
  - BLOOD TRIGLYCERIDES INCREASED [None]
  - CHAPPED LIPS [None]
  - COLITIS ULCERATIVE [None]
  - DRY EYE [None]
  - DRY SKIN [None]
  - ILEUS [None]
  - INFLAMMATORY BOWEL DISEASE [None]
  - PANCREATITIS [None]
  - PROCTITIS [None]
  - SINUSITIS [None]
